FAERS Safety Report 16405820 (Version 1)
Quarter: 2019Q2

REPORT INFORMATION
  Report Type: Spontaneous
  Country: ES (occurrence: ES)
  Receive Date: 20190607
  Receipt Date: 20190607
  Transmission Date: 20190711
  Serious: Yes (Hospitalization, Other)
  Sender: FDA-Public Use
  Company Number: ES-INCYTE CORPORATION-2019IN005745

PATIENT

DRUGS (2)
  1. JAKAVI [Suspect]
     Active Substance: RUXOLITINIB
     Indication: PRIMARY MYELOFIBROSIS
     Dosage: 5 MG, Q12H
     Route: 048
     Dates: start: 2015, end: 201808
  2. JAKAVI [Suspect]
     Active Substance: RUXOLITINIB
     Dosage: UNK
     Route: 065

REACTIONS (10)
  - Asthenia [Unknown]
  - Haemoglobin decreased [Unknown]
  - Hepatosplenomegaly [Recovered/Resolved]
  - Chronic hepatic failure [Recovered/Resolved]
  - Anaemia [Unknown]
  - Platelet count decreased [Unknown]
  - Cirrhosis alcoholic [Recovered/Resolved]
  - Varices oesophageal [Recovered/Resolved]
  - Gastrointestinal haemorrhage [Recovered/Resolved]
  - Splenomegaly [Unknown]

NARRATIVE: CASE EVENT DATE: 201704
